FAERS Safety Report 7540938-X (Version None)
Quarter: 2011Q2

REPORT INFORMATION
  Report Type: 
  Country: None (occurrence: None)
  Receive Date: 20110610
  Receipt Date: 20110603
  Transmission Date: 20111010
  Serious: Yes (Other)
  Sender: FDA-Public Use
  Company Number: US-PURDUE-USA-2011-0066675

PATIENT
  Sex: Male

DRUGS (2)
  1. OXYCONTIN [Suspect]
     Indication: PAIN
     Dosage: 60 MG, BID
  2. OXYCONTIN [Suspect]
     Dosage: 60 MG, DAILY
     Route: 048

REACTIONS (5)
  - SURGERY [None]
  - INSOMNIA [None]
  - INTENTIONAL DRUG MISUSE [None]
  - PAIN [None]
  - ABASIA [None]
